FAERS Safety Report 5147120-4 (Version None)
Quarter: 2006Q4

REPORT INFORMATION
  Report Type: 
  Country: None (occurrence: None)
  Receive Date: 20061103
  Receipt Date: 20061020
  Transmission Date: 20070319
  Serious: Yes (Other)
  Sender: FDA-Public Use
  Company Number: S06-HRV-03932-01

PATIENT
  Age: 43 Year
  Sex: Female
  Weight: 110 kg

DRUGS (2)
  1. CIPRALEX (ESCITALOPRAM) [Suspect]
     Indication: BIPOLAR I DISORDER
     Dosage: 5 MG QD PO
     Route: 048
     Dates: start: 20050501
  2. ZYPREXA [Suspect]
     Indication: BIPOLAR I DISORDER
     Dosage: 5 MG QD PO
     Route: 048
     Dates: start: 20050501

REACTIONS (1)
  - OBESITY [None]
